FAERS Safety Report 12099131 (Version 1)
Quarter: 2016Q1

REPORT INFORMATION
  Report Type: Spontaneous
  Country: US (occurrence: US)
  Receive Date: 20160222
  Receipt Date: 20160222
  Transmission Date: 20160526
  Serious: Yes (Other)
  Sender: FDA-Public Use
  Company Number: US-ELI_LILLY_AND_COMPANY-US201602003193

PATIENT
  Sex: Female

DRUGS (5)
  1. HUMULIN N [Suspect]
     Active Substance: INSULIN HUMAN
     Dosage: 7 U, EACH EVENING
     Route: 065
     Dates: start: 1975
  2. NOVOLOG [Concomitant]
     Active Substance: INSULIN ASPART
     Indication: TYPE 1 DIABETES MELLITUS
     Dosage: 19 U, EACH MORNING
     Route: 065
  3. HUMULIN N [Suspect]
     Active Substance: INSULIN HUMAN
     Indication: TYPE 1 DIABETES MELLITUS
     Dosage: 12 U, EACH MORNING
     Route: 065
     Dates: start: 1975
  4. HUMULIN N [Suspect]
     Active Substance: INSULIN HUMAN
     Dosage: 7 U, EACH EVENING
     Route: 065
  5. HUMULIN N [Suspect]
     Active Substance: INSULIN HUMAN
     Dosage: 12 U, EACH MORNING
     Route: 065

REACTIONS (3)
  - Colon cancer stage IV [Unknown]
  - Metastases to liver [Unknown]
  - Incorrect drug administration duration [Unknown]

NARRATIVE: CASE EVENT DATE: 2005
